FAERS Safety Report 15377275 (Version 4)
Quarter: 2019Q2

REPORT INFORMATION
  Report Type: Spontaneous
  Country: US (occurrence: US)
  Receive Date: 20180913
  Receipt Date: 20190415
  Transmission Date: 20190711
  Serious: No
  Sender: FDA-Public Use
  Company Number: US-PFIZER INC-2016572663

PATIENT
  Age: 82 Year
  Sex: Female
  Weight: 77 kg

DRUGS (19)
  1. LYRICA [Suspect]
     Active Substance: PREGABALIN
     Indication: NEUROPATHY PERIPHERAL
     Dosage: 75 MG, 2X/DAY (INITIALLY TOOK EXTRA CAPSULE IN NIGHT AND THEN CHANGED TO EXTRA CAPSULE IN MORNING)
     Route: 048
  2. LIPOFLAVONOID [ASCORBIC ACID;BIOFLAVONOIDS;CHOLINE BITARTRATE;DEXPANTH [Concomitant]
     Indication: TINNITUS
     Dosage: UNK, TWICE A DAY
  3. ETODOLAC. [Concomitant]
     Active Substance: ETODOLAC
     Dosage: 400 MG, 2X/DAY
  4. FLOVENT HFA [Concomitant]
     Active Substance: FLUTICASONE PROPIONATE
     Dosage: 110 UG, 1X/DAY
  5. EVOA [Concomitant]
     Indication: MACULAR DEGENERATION
     Dosage: 1 CAPSULE (DF), TWICE A DAY
  6. DIAZEPAM. [Concomitant]
     Active Substance: DIAZEPAM
     Indication: VERTIGO
     Dosage: 2 MG, UNK
  7. DOXAZOSIN [Concomitant]
     Active Substance: DOXAZOSIN\DOXAZOSIN MESYLATE
     Dosage: 2 MG, DAILY
  8. VITAMIN B-COMPLEX [Concomitant]
     Active Substance: DEXPANTHENOL\NIACINAMIDE\PYRIDOXINE HYDROCHLORIDE\RIBOFLAVIN 5^-PHOSPHATE SODIUM\THIAMINE HYDROCHLORIDE
     Dosage: UNK
  9. LOSARTIN [Concomitant]
     Active Substance: LOSARTAN
     Dosage: 100 MG, DAILY
  10. LYRICA [Suspect]
     Active Substance: PREGABALIN
     Indication: BACK DISORDER
     Dosage: 75 MG, 1X/DAY
     Route: 048
  11. FUROSEMIDE. [Concomitant]
     Active Substance: FUROSEMIDE
     Dosage: 20 MG, DAILY
  12. IRON [Concomitant]
     Active Substance: IRON
     Dosage: 65 MG, DAILY
  13. LIPOFLAVONOID [ASCORBIC ACID;BIOFLAVONOIDS;CHOLINE BITARTRATE;DEXPANTH [Concomitant]
     Indication: MENIERE^S DISEASE
  14. MYRBETRIQ [Concomitant]
     Active Substance: MIRABEGRON
     Dosage: 50 MG, DAILY
  15. LORATADINE. [Concomitant]
     Active Substance: LORATADINE
     Dosage: 10 MG, 1X/DAY
  16. ALENDRONATE SODIUM. [Concomitant]
     Active Substance: ALENDRONATE SODIUM
     Dosage: 70 MG, WEEKLY
  17. CITALOPRAM [Concomitant]
     Active Substance: CITALOPRAM HYDROBROMIDE
     Dosage: 20 MG, DAILY
  18. CALCIUM CITRATE MALATE WITH D3 [Concomitant]
     Dosage: 100 MG, UNK
  19. VITAMIN D3 [Concomitant]
     Active Substance: CHOLECALCIFEROL
     Dosage: 2000 IU, 1X/DAY

REACTIONS (5)
  - Drug ineffective [Unknown]
  - Grip strength decreased [Not Recovered/Not Resolved]
  - Insomnia [Unknown]
  - Intentional product use issue [Unknown]
  - Product prescribing error [Unknown]

NARRATIVE: CASE EVENT DATE: 201807
